FAERS Safety Report 5486491-6 (Version None)
Quarter: 2007Q3

REPORT INFORMATION
  Report Type: 
  Country: None (occurrence: None)
  Receive Date: 20070919
  Receipt Date: 20070731
  Transmission Date: 20080115
  Serious: No
  Sender: FDA-Public Use
  Company Number: 2007RL000343

PATIENT
  Age: 69 Year
  Sex: Male

DRUGS (12)
  1. OMACOR [Suspect]
     Indication: CARDIAC DISORDER
     Dosage: 1 GM; QD; PO
     Route: 048
     Dates: start: 20070630
  2. ZANTAC [Concomitant]
  3. TOPROL-XL [Concomitant]
  4. DIGOXIN [Concomitant]
  5. ALTACE [Concomitant]
  6. FUROSEMIDE [Concomitant]
  7. VYTORIN [Concomitant]
  8. SPIRONOLACTONE [Concomitant]
  9. L-THYROXINE [Concomitant]
  10. TRICOR [Concomitant]
  11. ASPIRIN [Concomitant]
  12. ASCORBIC ACID [Concomitant]

REACTIONS (3)
  - DYSPEPSIA [None]
  - FREQUENT BOWEL MOVEMENTS [None]
  - OFF LABEL USE [None]
